FAERS Safety Report 9491639 (Version 1)
Quarter: 2013Q1

REPORT INFORMATION
  Report Type: Not Available
  Country: US (occurrence: US)
  Receive Date: 20121219
  Receipt Date: 20121219
  Transmission Date: 20140127
  Serious: No
  Sender: FDA-Public Use
  Company Number: US-LUNDBECK-DKLU1084528

PATIENT
  Sex: Female

DRUGS (3)
  1. ONFI [Suspect]
     Indication: COMPLEX PARTIAL SEIZURES
     Route: 048
     Dates: start: 20120820
  2. ONFI [Suspect]
     Indication: EPILEPSY
  3. NEURONTIN [Concomitant]
     Indication: PRODUCT USED FOR UNKNOWN INDICATION

REACTIONS (7)
  - Illogical thinking [Unknown]
  - Hostility [Unknown]
  - Personality change [Unknown]
  - Restlessness [Unknown]
  - Initial insomnia [Unknown]
  - Aggression [Unknown]
  - Bowel movement irregularity [Unknown]
